FAERS Safety Report 4564417-7 (Version None)
Quarter: 2005Q1

REPORT INFORMATION
  Report Type: 
  Country: None (occurrence: None)
  Receive Date: 20050128
  Receipt Date: 20040123
  Transmission Date: 20050727
  Serious: No
  Sender: FDA-Public Use
  Company Number: US-GLAXOSMITHKLINE-A0495982A

PATIENT
  Age: 38 Year
  Sex: Male

DRUGS (10)
  1. EPIVIR [Suspect]
     Indication: HIV INFECTION
     Route: 048
     Dates: start: 19970101
  2. CERAT [Concomitant]
  3. VIDISEPT [Concomitant]
  4. VIREAD [Concomitant]
  5. VIRAMUNE [Concomitant]
  6. WELLBUTRIN [Concomitant]
  7. AMBIEN [Concomitant]
  8. CERUCAL [Concomitant]
  9. KLONOPIN [Concomitant]
  10. RISPERDAL [Concomitant]

REACTIONS (1)
  - ALOPECIA [None]
